FAERS Safety Report 15374855 (Version 1)
Quarter: 2018Q3

REPORT INFORMATION
  Report Type: Spontaneous
  Country: BR (occurrence: BR)
  Receive Date: 20180912
  Receipt Date: 20180912
  Transmission Date: 20181010
  Serious: Yes (Hospitalization)
  Sender: FDA-Public Use
  Company Number: BR-PFIZER INC-2018333893

PATIENT
  Age: 78 Year
  Sex: Male

DRUGS (1)
  1. SUTENT [Suspect]
     Active Substance: SUNITINIB MALATE
     Dosage: UNK

REACTIONS (5)
  - Pyrexia [Recovered/Resolved]
  - Feeding disorder [Recovered/Resolved]
  - Speech disorder [Not Recovered/Not Resolved]
  - Lung disorder [Recovered/Resolved]
  - Asthenia [Recovered/Resolved]
